FAERS Safety Report 20290368 (Version 1)
Quarter: 2022Q1

REPORT INFORMATION
  Report Type: Spontaneous
  Country: DE (occurrence: DE)
  Receive Date: 20220104
  Receipt Date: 20220104
  Transmission Date: 20220423
  Serious: Yes (Congenital Anomaly, Other)
  Sender: FDA-Public Use
  Company Number: None

PATIENT
  Sex: Male
  Weight: 3 kg

DRUGS (7)
  1. URSONORM [Concomitant]
     Indication: Cholestasis of pregnancy
     Dosage: 750 [MG/D (3X250) ]
     Route: 064
     Dates: start: 20210622, end: 20210704
  2. SYMBICORT [Suspect]
     Active Substance: BUDESONIDE\FORMOTEROL FUMARATE DIHYDRATE
     Indication: Asthma
     Dosage: 320 G/D (2X160)  / 9 G/D (2X4.5)  2 SEPARATED DOSES
     Route: 064
     Dates: start: 20201003, end: 20210704
  3. LACHGAS [Concomitant]
     Indication: Labour pain
     Dosage: UNKNOWN
     Route: 064
  4. DIETARY SUPPLEMENT\HERBALS [Concomitant]
     Active Substance: DIETARY SUPPLEMENT\HERBALS
     Indication: Sinusitis
     Dosage: UNKNOWN
     Route: 064
  5. SULTANOL [Concomitant]
     Active Substance: ALBUTEROL SULFATE
     Indication: Asthma
     Dosage: NO MORE THAN 4 TIMES DURING THE ENTIRE PREGNANCY
     Route: 064
  6. ASPIRIN [Concomitant]
     Active Substance: ASPIRIN
     Indication: Prophylaxis
     Dosage: 150 [MG/D ]
     Route: 064
  7. CETIRIZINE [Suspect]
     Active Substance: CETIRIZINE HYDROCHLORIDE
     Indication: Seasonal allergy
     Dosage: 10 [MG/D ]
     Route: 064
     Dates: start: 20201003, end: 20210704

REACTIONS (2)
  - Kidney duplex [Unknown]
  - Foetal exposure during pregnancy [Unknown]
